FAERS Safety Report 16339665 (Version 1)
Quarter: 2019Q2

REPORT INFORMATION
  Report Type: Report from Study
  Country: CA (occurrence: CA)
  Receive Date: 20190521
  Receipt Date: 20190521
  Transmission Date: 20190711
  Serious: Yes (Other)
  Sender: FDA-Public Use
  Company Number: CA-TEVA-2019-CA-1052836

PATIENT
  Age: 13 Month
  Sex: Male

DRUGS (1)
  1. CICLOSPORIN A [Suspect]
     Active Substance: CYCLOSPORINE
     Indication: NEPHROTIC SYNDROME
     Dosage: IN TWO DIVIDED DOSES
     Route: 065

REACTIONS (1)
  - Haemolytic uraemic syndrome [Unknown]
